FAERS Safety Report 6755968-5 (Version None)
Quarter: 2010Q2

REPORT INFORMATION
  Report Type: 
  Country: None (occurrence: None)
  Receive Date: 20100604
  Receipt Date: 20100524
  Transmission Date: 20101027
  Serious: Yes (Hospitalization, Other)
  Sender: FDA-Public Use
  Company Number: PHHY2010BR33521

PATIENT
  Age: 31 Year
  Sex: Female

DRUGS (4)
  1. TEGRETOL [Suspect]
     Dosage: 20 TABLETS
     Route: 048
  2. CHLORPROMAZINE [Suspect]
     Dosage: 10 TABLETS
     Route: 048
  3. HALOPERIDOL [Suspect]
     Dosage: 10 TABLETS
     Route: 048
  4. LITHIUM CARBONATE CAP [Suspect]
     Dosage: 17 TABLETS
     Route: 048

REACTIONS (3)
  - OVERDOSE [None]
  - SOMNOLENCE [None]
  - SUICIDE ATTEMPT [None]
